FAERS Safety Report 22962254 (Version 9)
Quarter: 2024Q1

REPORT INFORMATION
  Report Type: Report from Study
  Country: NL (occurrence: NL)
  Receive Date: 20230920
  Receipt Date: 20240319
  Transmission Date: 20240410
  Serious: Yes (Hospitalization, Other)
  Sender: FDA-Public Use
  Company Number: NL-ABBVIE-4280782

PATIENT
  Age: 69 Year
  Sex: Male

DRUGS (22)
  1. CARBIDOPA\LEVODOPA [Suspect]
     Active Substance: CARBIDOPA\LEVODOPA
     Indication: Parkinson^s disease
     Dosage: REMAINS AT 16 HOURS
     Route: 050
     Dates: start: 20150212
  2. CARBIDOPA\LEVODOPA [Suspect]
     Active Substance: CARBIDOPA\LEVODOPA
     Dosage: MD: 3.0 ML, CD: 5.9 ML/H, ED: 3.3 ML, CND: 4.2 ML/H, END: 2.0 ML/REMAIN AT 16 HOURS
     Route: 050
     Dates: start: 20230913, end: 20231004
  3. CARBIDOPA\LEVODOPA [Suspect]
     Active Substance: CARBIDOPA\LEVODOPA
     Dosage: MD 3.0 CD 6.1 ED 3.3 EDN 2.0 CDN 4.0/REMAINS AT 16
     Route: 050
     Dates: start: 20220707, end: 20220707
  4. CARBIDOPA\LEVODOPA [Suspect]
     Active Substance: CARBIDOPA\LEVODOPA
     Dosage: EDN 2.0 CDN 4.2, REMAINS AT 24 HOURS
     Route: 050
     Dates: start: 20221102
  5. CARBIDOPA\LEVODOPA [Suspect]
     Active Substance: CARBIDOPA\LEVODOPA
     Dosage: MD: 3.0 ML, CD: 5.9 ML/H, ED: 3.3 ML, CND: 4.2 ML/H, END: 2.0 ML/REMAINS AT 24 HOURS
     Route: 050
     Dates: start: 20231004, end: 20231004
  6. CARBIDOPA\LEVODOPA [Suspect]
     Active Substance: CARBIDOPA\LEVODOPA
     Dosage: MD 3.0 CD 6.1 ED 3.3/REMAINS AT 24 HOURS
     Route: 050
     Dates: start: 20220705, end: 20220705
  7. CARBIDOPA\LEVODOPA [Suspect]
     Active Substance: CARBIDOPA\LEVODOPA
     Dosage: MD: 3.0ML, CD: 5.1ML/H, ED: 3.3ML, MND: 0.0ML, CND: 4.0ML/H, END: 2.0ML?DURATION TEXT: REMAINS AT...
     Route: 050
     Dates: start: 20231212, end: 20231212
  8. CARBIDOPA\LEVODOPA [Suspect]
     Active Substance: CARBIDOPA\LEVODOPA
     Dosage: MD: 2.9ML; CD: 4.5ML/H; ED: 0.0ML; ND: 0.0ML; CND: 3.4ML/H; END: 0.0ML
     Route: 050
     Dates: start: 20240312, end: 20240312
  9. CARBIDOPA\LEVODOPA [Suspect]
     Active Substance: CARBIDOPA\LEVODOPA
     Dosage: MD: 3.0ML, CD: 5.1ML/H, ED: 0.0ML, MND: 0.0ML, CND: 4.0ML/H, END: 0.0ML?REMAINS AT 24 HOURS
     Route: 050
     Dates: start: 20231212, end: 20231215
  10. CARBIDOPA\LEVODOPA [Suspect]
     Active Substance: CARBIDOPA\LEVODOPA
     Dosage: MD 3.0 CD 6.1 ED 3.3 EDN 2.0 CDN 4.0, REMAINS AT 16 HOURS
     Route: 050
     Dates: start: 20221017, end: 20221017
  11. CARBIDOPA\LEVODOPA [Suspect]
     Active Substance: CARBIDOPA\LEVODOPA
     Dosage: MD: 3.0 ML, CD: 6.1 ML/H, ED: 3.3 ML, CND: 4.2 M L/H, END: 2.0 ML,?REMAINS AT 24 HOURS
     Route: 050
  12. CARBIDOPA\LEVODOPA [Suspect]
     Active Substance: CARBIDOPA\LEVODOPA
     Dosage: MD: 3.0ML, CD: 5.1ML/H, ED: 0.0ML, MND: 0.0ML, CND: 4.0ML/H, END: 0.0ML?REMAINS AT 24 HOURS
     Route: 050
  13. CARBIDOPA\LEVODOPA [Suspect]
     Active Substance: CARBIDOPA\LEVODOPA
     Dosage: CD: 4.6 ML/H; CND: 3.5 ML/H, REMAINS AT 24 HOURS?LAST ADMIN DATE: 2024
     Route: 050
     Dates: start: 20240226
  14. CARBIDOPA\LEVODOPA [Suspect]
     Active Substance: CARBIDOPA\LEVODOPA
     Dosage: MD: 3.0 ML, CD: 6.1 ML/H, ED: 3.3 ML, CND: 4.2 ML/H, END: 2.0 ML/REMAINS AT 24 HOURS
     Route: 050
     Dates: start: 20230620, end: 20230721
  15. CARBIDOPA\LEVODOPA [Suspect]
     Active Substance: CARBIDOPA\LEVODOPA
     Dosage: REMAINS AT 24 HOURS
     Route: 050
  16. CARBIDOPA\LEVODOPA [Suspect]
     Active Substance: CARBIDOPA\LEVODOPA
     Dosage: MD: 3.0 ML, CD: 5.7 ML/H, ED: 3.3 ML//REMAINS AT 24 HOURS?LAST ADMIN DATE 2023
     Route: 050
     Dates: start: 20231004
  17. CARBIDOPA\LEVODOPA [Suspect]
     Active Substance: CARBIDOPA\LEVODOPA
     Dosage: CD: 4.9 ML/H; CND: 3.8 ML/H, REMAINS AT 24 HOURS
     Route: 050
     Dates: start: 20231215, end: 20240226
  18. HYDROXYZINE [Concomitant]
     Active Substance: HYDROXYZINE HYDROCHLORIDE
     Indication: Sleep disorder
     Route: 065
  19. POLYETHYLENE GLYCOLS [Concomitant]
     Active Substance: POLYETHYLENE GLYCOLS
     Indication: Abnormal faeces
     Route: 065
  20. FERROUS GLUCONATE [Concomitant]
     Active Substance: FERROUS GLUCONATE
     Indication: Product used for unknown indication
     Route: 048
  21. CLOZAPINE [Concomitant]
     Active Substance: CLOZAPINE
     Indication: Hallucination
     Dosage: DOSE INCREASED
  22. RIVASTIGMINE [Concomitant]
     Active Substance: RIVASTIGMINE
     Indication: Product used for unknown indication
     Dosage: DOSE INCREASED
     Route: 065

REACTIONS (39)
  - Device dislocation [Not Recovered/Not Resolved]
  - Decreased appetite [Recovering/Resolving]
  - Underdose [Recovered/Resolved]
  - Weight increased [Not Recovered/Not Resolved]
  - Unevaluable event [Not Recovered/Not Resolved]
  - Weight decreased [Recovered/Resolved]
  - Freezing phenomenon [Not Recovered/Not Resolved]
  - Muscle rigidity [Not Recovered/Not Resolved]
  - Underdose [Unknown]
  - Faeces hard [Not Recovered/Not Resolved]
  - Patient-device incompatibility [Not Recovered/Not Resolved]
  - Bowel movement irregularity [Recovered/Resolved]
  - Illness [Not Recovered/Not Resolved]
  - Fall [Not Recovered/Not Resolved]
  - Balance disorder [Not Recovered/Not Resolved]
  - Memory impairment [Not Recovered/Not Resolved]
  - Fear [Not Recovered/Not Resolved]
  - Loss of personal independence in daily activities [Not Recovered/Not Resolved]
  - Restlessness [Not Recovered/Not Resolved]
  - Gait disturbance [Not Recovered/Not Resolved]
  - Dyskinesia [Not Recovered/Not Resolved]
  - Faecal volume decreased [Not Recovered/Not Resolved]
  - Sleep talking [Not Recovered/Not Resolved]
  - Off label use [Not Recovered/Not Resolved]
  - Unevaluable event [Not Recovered/Not Resolved]
  - Device difficult to use [Not Recovered/Not Resolved]
  - Hallucination [Recovered/Resolved]
  - Confusional state [Not Recovered/Not Resolved]
  - Device dislocation [Recovered/Resolved]
  - Disturbance in attention [Unknown]
  - Judgement impaired [Unknown]
  - Device connection issue [Unknown]
  - Hallucination [Not Recovered/Not Resolved]
  - Pneumonia [Recovered/Resolved]
  - Cognitive disorder [Not Recovered/Not Resolved]
  - Device issue [Recovered/Resolved]
  - Anxiety [Not Recovered/Not Resolved]
  - Appetite disorder [Not Recovered/Not Resolved]
  - Memory impairment [Not Recovered/Not Resolved]

NARRATIVE: CASE EVENT DATE: 20230101
